FAERS Safety Report 24530629 (Version 1)
Quarter: 2024Q4

REPORT INFORMATION
  Report Type: Spontaneous
  Country: CN (occurrence: CN)
  Receive Date: 20241021
  Receipt Date: 20241021
  Transmission Date: 20250115
  Serious: Yes (Life-Threatening, Other)
  Sender: ELI LILLY AND COMPANY
  Company Number: CN-ELI_LILLY_AND_COMPANY-CN202410010681

PATIENT
  Age: 45 Year
  Sex: Female

DRUGS (2)
  1. ABEMACICLIB [Suspect]
     Active Substance: ABEMACICLIB
     Indication: Neoplasm
     Dosage: 100 MG, BID
     Route: 048
     Dates: start: 20240805, end: 20240901
  2. LETROZOLE [Suspect]
     Active Substance: LETROZOLE
     Indication: Neoplasm
     Dosage: 2.5 MG, DAILY
     Route: 048
     Dates: start: 20240805, end: 20241003

REACTIONS (3)
  - White blood cell count decreased [Unknown]
  - Granulocyte count decreased [Unknown]
  - Neutrophil count decreased [Unknown]

NARRATIVE: CASE EVENT DATE: 20240930
